FAERS Safety Report 18212902 (Version 1)
Quarter: 2020Q3

REPORT INFORMATION
  Report Type: Spontaneous
  Country: US (occurrence: US)
  Receive Date: 20200830
  Receipt Date: 20200830
  Transmission Date: 20201103
  Serious: Yes (Hospitalization)
  Sender: FDA-Public Use
  Company Number: None

PATIENT
  Sex: Female

DRUGS (1)
  1. AVONEX [Suspect]
     Active Substance: INTERFERON BETA-1A
     Indication: MULTIPLE SCLEROSIS
     Dosage: OTHER DOSE:30MCG/0.5ML; ONCE A WEEK INTRAMUSCULARLY?
     Route: 030
     Dates: start: 1996

REACTIONS (1)
  - Pyrexia [None]
